FAERS Safety Report 5162409-0 (Version None)
Quarter: 2006Q4

REPORT INFORMATION
  Report Type: 
  Country: None (occurrence: None)
  Receive Date: 20061128
  Receipt Date: 20061128
  Transmission Date: 20070319
  Serious: Yes (Other)
  Sender: FDA-Public Use
  Company Number: None

PATIENT
  Age: 70 Year
  Sex: Male
  Weight: 98.8842 kg

DRUGS (19)
  1. MORPHINE [Suspect]
     Indication: PAIN
     Dosage: PRN
     Dates: start: 20060802, end: 20060813
  2. SIMVASTATIN [Concomitant]
  3. THIAMINE [Concomitant]
  4. ACETAMINOPHEN [Concomitant]
  5. OXYCODONE AND ACETAMINOPHEN [Concomitant]
  6. ALBUTEROL [Concomitant]
  7. ATENOLOL [Concomitant]
  8. CALCIUM CARBONATE [Concomitant]
  9. DIPHENHYDRAMINE HCL [Concomitant]
  10. DOCUSATE [Concomitant]
  11. FOLIC ACID [Concomitant]
  12. INSULIN HUMAN NPH [Concomitant]
  13. IPRATROPIUM SOLN [Concomitant]
  14. KETOCONAZOLE [Concomitant]
  15. LISINOPRIL [Concomitant]
  16. LORAZEPAM [Concomitant]
  17. MAGNESIUM OXIDE [Concomitant]
  18. OMEPRAZOLE [Concomitant]
  19. TERAZOSIN HCL [Concomitant]

REACTIONS (1)
  - PRURITUS [None]
